FAERS Safety Report 13580011 (Version 1)
Quarter: 2017Q2

REPORT INFORMATION
  Report Type: Spontaneous
  Country: US (occurrence: US)
  Receive Date: 20170524
  Receipt Date: 20170524
  Transmission Date: 20170830
  Serious: Yes (Hospitalization)
  Sender: FDA-Public Use
  Company Number: None

PATIENT
  Age: 80 Year
  Sex: Male

DRUGS (1)
  1. CAPECITABINE 500MG UNKNOWN [Suspect]
     Active Substance: CAPECITABINE
     Indication: COLON CANCER
     Dosage: 2 BID X 7D ON + 7D OFF
     Route: 048
     Dates: start: 20150730

REACTIONS (1)
  - Renal failure [None]

NARRATIVE: CASE EVENT DATE: 20170306
